FAERS Safety Report 14165830 (Version 1)
Quarter: 2017Q4

REPORT INFORMATION
  Report Type: Spontaneous
  Country: DE (occurrence: DE)
  Receive Date: 20171107
  Receipt Date: 20171107
  Transmission Date: 20180321
  Serious: Yes (Other)
  Sender: FDA-Public Use
  Company Number: DE-TEVA-820538GER

PATIENT
  Age: 51 Year
  Sex: Female
  Weight: 71 kg

DRUGS (3)
  1. PREDNISOLON [Suspect]
     Active Substance: PREDNISOLONE
     Indication: SINUSITIS
     Route: 048
     Dates: start: 20170310
  2. CIPROBETA 500 MG FILMTABLETTEN [Interacting]
     Active Substance: CIPROFLOXACIN
     Indication: SINUSITIS
     Dosage: 2X500
     Route: 048
     Dates: start: 20170213
  3. ASS 100 [Concomitant]
     Active Substance: ASPIRIN
     Indication: CEREBROVASCULAR ACCIDENT
     Dates: start: 1988

REACTIONS (18)
  - Polyneuropathy [Unknown]
  - Headache [Unknown]
  - Tendon pain [Unknown]
  - Disturbance in attention [Unknown]
  - Head discomfort [Unknown]
  - Palpitations [Recovered/Resolved]
  - Hypertension [Unknown]
  - Paraesthesia [Unknown]
  - Sedation [Unknown]
  - Mitochondrial cytopathy [Unknown]
  - Middle insomnia [Unknown]
  - Gait disturbance [Unknown]
  - Feeling abnormal [None]
  - Asthenia [Unknown]
  - Drug interaction [Unknown]
  - Myalgia [Unknown]
  - Arthralgia [Unknown]
  - Memory impairment [Unknown]

NARRATIVE: CASE EVENT DATE: 2017
